FAERS Safety Report 7077887-X (Version None)
Quarter: 2010Q4

REPORT INFORMATION
  Report Type: 
  Country: None (occurrence: None)
  Receive Date: 20101101
  Receipt Date: 20101020
  Transmission Date: 20110411
  Serious: Yes (Hospitalization)
  Sender: FDA-Public Use
  Company Number: IT-ELI_LILLY_AND_COMPANY-IT201010004752

PATIENT
  Sex: Female

DRUGS (2)
  1. ALIMTA [Suspect]
     Indication: LUNG NEOPLASM MALIGNANT
     Dosage: 800 MG, DAILY (1/D)
     Dates: start: 20100715, end: 20100830
  2. ZOMETA [Concomitant]
     Dosage: 4 MG, UNK
     Route: 042
     Dates: start: 20100525, end: 20100805

REACTIONS (3)
  - HYPOCALCAEMIA [None]
  - PANCYTOPENIA [None]
  - RENAL FAILURE [None]
